FAERS Safety Report 4666570-3 (Version None)
Quarter: 2005Q2

REPORT INFORMATION
  Report Type: 
  Country: None (occurrence: None)
  Receive Date: 20050519
  Receipt Date: 20050509
  Transmission Date: 20051028
  Serious: Yes (Hospitalization)
  Sender: FDA-Public Use
  Company Number: FR-SANOFI-SYNTHELABO-A02200501253

PATIENT
  Age: 24 Year
  Sex: Female
  Weight: 133 kg

DRUGS (7)
  1. STILNOX [Suspect]
     Indication: DRUG USE FOR UNKNOWN INDICATION
     Route: 048
     Dates: start: 20050101
  2. L-THYROXINE ROCHE [Interacting]
     Indication: HYPOTHYROIDISM POSTOPERATIVE
     Dosage: UNK
     Route: 048
     Dates: start: 20041001, end: 20050321
  3. L-THYROXINE ROCHE [Interacting]
     Dosage: UNK
     Route: 042
     Dates: start: 20050401
  4. PROZAC [Interacting]
     Indication: DRUG USE FOR UNKNOWN INDICATION
     Route: 048
     Dates: start: 20050101
  5. EUTHYRAL [Interacting]
     Indication: HYPOTHYROIDISM POSTOPERATIVE
     Dosage: UNK
     Route: 048
     Dates: start: 20010101, end: 20041001
  6. EUTHYRAL [Interacting]
     Dosage: UNK
     Route: 048
     Dates: start: 20050301, end: 20050401
  7. DIANE [Concomitant]
     Indication: ORAL CONTRACEPTION
     Dosage: CYPROTERONE = 2 MG+ETHINYLESTRADIOL = 35 MICROG
     Route: 048
     Dates: start: 19950101

REACTIONS (3)
  - CONDITION AGGRAVATED [None]
  - DRUG INTERACTION [None]
  - HYPOTHYROIDISM [None]
